FAERS Safety Report 19405867 (Version 1)
Quarter: 2021Q2

REPORT INFORMATION
  Report Type: Spontaneous
  Country: US (occurrence: US)
  Receive Date: 20210611
  Receipt Date: 20210611
  Transmission Date: 20210717
  Serious: Yes (Life-Threatening, Hospitalization)
  Sender: FDA-Public Use
  Company Number: US-MYLANLABS-2021M1033732

PATIENT
  Age: 70 Year
  Sex: Female

DRUGS (1)
  1. WARFARIN [Suspect]
     Active Substance: WARFARIN
     Indication: ANTICOAGULANT THERAPY
     Dosage: UNK UNK, QD
     Route: 065

REACTIONS (7)
  - Haemothorax [Unknown]
  - Hypotension [Unknown]
  - Cardiac arrest [Unknown]
  - Acute respiratory failure [Recovered/Resolved]
  - Haematoma [Unknown]
  - Anticoagulation drug level above therapeutic [Unknown]
  - Haematuria [Recovered/Resolved]
